FAERS Safety Report 6093152-1 (Version None)
Quarter: 2009Q1

REPORT INFORMATION
  Report Type: 
  Country: None (occurrence: None)
  Receive Date: 20090226
  Receipt Date: 20090214
  Transmission Date: 20090719
  Serious: Yes (Other)
  Sender: FDA-Public Use
  Company Number: US-PFIZER INC-2009170962

PATIENT
  Sex: Female
  Weight: 66.667 kg

DRUGS (10)
  1. CHANTIX [Suspect]
     Indication: SMOKING CESSATION THERAPY
     Dosage: 0.5 MG, 1X/DAY
     Dates: start: 20080201
  2. LAMICTAL [Suspect]
     Indication: BIPOLAR DISORDER
     Dosage: UNK
     Dates: start: 20090212
  3. ADIPEX-P [Suspect]
     Indication: MEDICAL DIET
     Dosage: UNK
     Dates: start: 20090212
  4. ULTRAM [Concomitant]
     Dosage: UNK
  5. AMITRIPTYLINE HYDROCHLORIDE [Concomitant]
     Dosage: UNK
  6. PERCOCET [Concomitant]
     Dosage: UNK
  7. PRILOSEC [Concomitant]
     Dosage: UNK
  8. SOMA [Concomitant]
     Dosage: UNK
  9. PREMARIN [Concomitant]
     Dosage: UNK
  10. XANAX [Concomitant]
     Dosage: UNK

REACTIONS (1)
  - BIPOLAR DISORDER [None]
